FAERS Safety Report 17061773 (Version 1)
Quarter: 2019Q4

REPORT INFORMATION
  Report Type: Spontaneous
  Country: FR (occurrence: FR)
  Receive Date: 20191121
  Receipt Date: 20191121
  Transmission Date: 20200122
  Serious: Yes (Hospitalization, Disabling)
  Sender: FDA-Public Use
  Company Number: FR-SAMSUNG BIOEPIS-SB-2019-33934

PATIENT
  Age: 17 Year
  Sex: Male
  Weight: 61.7 kg

DRUGS (1)
  1. BENEPALI [Suspect]
     Active Substance: ETANERCEPT
     Indication: OSTEITIS CONDENSANS
     Dosage: UNKNOWN
     Route: 058
     Dates: start: 201807, end: 20190219

REACTIONS (3)
  - Aneurysm [Recovered/Resolved with Sequelae]
  - Aortitis [Recovered/Resolved with Sequelae]
  - Product use in unapproved indication [Unknown]

NARRATIVE: CASE EVENT DATE: 201903
